FAERS Safety Report 18024270 (Version 1)
Quarter: 2020Q3

REPORT INFORMATION
  Report Type: Spontaneous
  Country: US (occurrence: US)
  Receive Date: 20200714
  Receipt Date: 20200714
  Transmission Date: 20201103
  Serious: Yes (Death, Life-Threatening, Other)
  Sender: FDA-Public Use
  Company Number: None

PATIENT
  Age: 55 Year
  Sex: Male
  Weight: 104.3 kg

DRUGS (22)
  1. REMDESIVIR. [Suspect]
     Active Substance: REMDESIVIR
     Indication: COVID-19 PNEUMONIA
     Dosage: ?          OTHER FREQUENCY:200MG/D, 100MGX4;?
     Route: 042
     Dates: start: 20200630, end: 20200705
  2. FENTANYL 25MCG IV PRN [Concomitant]
     Dates: start: 20200627, end: 20200706
  3. DIAZEPAM 5MG IV Q6?12H [Concomitant]
     Dates: start: 20200702, end: 20200706
  4. BENZTROPINE 1MG NG Q8H [Concomitant]
     Dates: start: 20200702, end: 20200706
  5. PIP/TAZO 3.375G IV Q8H [Concomitant]
     Dates: start: 20200702, end: 20200703
  6. ENOXAPARIN PROPHY THEN TREATMENT [Concomitant]
     Dates: start: 20200627, end: 20200706
  7. INSULIN LISPRO SLIDING SCALE 4X/DAY [Concomitant]
     Dates: start: 20200626, end: 20200705
  8. CEFTRIAXONE 1G IV ONCE [Concomitant]
     Dates: start: 20200626, end: 20200626
  9. SODIUM BICARBONATE INFUSION [Concomitant]
     Dates: start: 20200705, end: 20200706
  10. AZITHROMYCIN 500MG IV DAILY [Concomitant]
     Dates: start: 20200626, end: 20200703
  11. DEXAMETHASONE 6MG IV DAILY [Concomitant]
     Dates: start: 20200626, end: 20200706
  12. CULTURELLE CAPSULE Q24H [Concomitant]
     Dates: start: 20200628, end: 20200706
  13. ZINC SULFATE 220MG DAILY [Concomitant]
     Dates: start: 20200628, end: 20200706
  14. AMIODARONE BOLUS AND INFUSION [Concomitant]
     Dates: start: 20200704, end: 20200706
  15. CEFEPIME 1G IV Q6H [Concomitant]
     Dates: start: 20200627, end: 20200702
  16. MEROPENEM 500MG IV Q6H [Concomitant]
     Dates: start: 20200703, end: 20200706
  17. NOREPINEPHRINE INFUSION [Concomitant]
     Dates: start: 20200704, end: 20200706
  18. PHENYLEPHRINE INFUSION [Concomitant]
     Dates: start: 20200704, end: 20200706
  19. VITAMIN C 1000MG DAILY [Concomitant]
     Dates: start: 20200628, end: 20200706
  20. DAPTOMYCIN 6 MG/KG IV DAILY [Concomitant]
     Dates: start: 20200703, end: 20200703
  21. PRECEDEX INFUSION [Concomitant]
     Dates: start: 20200630, end: 20200706
  22. METOPROLOL 5MG IV Q6H [Concomitant]
     Dates: start: 20200628, end: 20200704

REACTIONS (3)
  - Blood creatinine increased [None]
  - Atrial fibrillation [None]
  - International normalised ratio increased [None]

NARRATIVE: CASE EVENT DATE: 20200705
